FAERS Safety Report 13685323 (Version 1)
Quarter: 2017Q2

REPORT INFORMATION
  Report Type: Spontaneous
  Country: GB (occurrence: GB)
  Receive Date: 20170623
  Receipt Date: 20170623
  Transmission Date: 20170830
  Serious: Yes (Other)
  Sender: FDA-Public Use
  Company Number: GB-MYLANLABS-2017M1037711

PATIENT

DRUGS (3)
  1. TEGRETOL [Suspect]
     Active Substance: CARBAMAZEPINE
     Indication: GLOSSOPHARYNGEAL NEURALGIA
     Dosage: 800MG
     Route: 065
  2. PREGABALIN. [Suspect]
     Active Substance: PREGABALIN
     Indication: GLOSSOPHARYNGEAL NEURALGIA
     Dosage: 600MG
     Route: 065
  3. TRAMADOL. [Suspect]
     Active Substance: TRAMADOL
     Indication: GLOSSOPHARYNGEAL NEURALGIA
     Dosage: 400MG
     Route: 065

REACTIONS (2)
  - Cognitive disorder [Recovered/Resolved]
  - Balance disorder [Recovered/Resolved]
